FAERS Safety Report 5856278-0 (Version None)
Quarter: 2008Q3

REPORT INFORMATION
  Report Type: 
  Country: None (occurrence: None)
  Receive Date: 20080825
  Receipt Date: 20080818
  Transmission Date: 20090109
  Serious: Yes (Hospitalization)
  Sender: FDA-Public Use
  Company Number: B0533493A

PATIENT
  Age: 35 Year
  Sex: Male
  Weight: 82 kg

DRUGS (1)
  1. NARATRIPTAN [Suspect]
     Indication: MIGRAINE
     Route: 048
     Dates: start: 20080709, end: 20080709

REACTIONS (3)
  - DYSTONIA [None]
  - HYPOAESTHESIA FACIAL [None]
  - PARAESTHESIA [None]
